FAERS Safety Report 12184066 (Version 3)
Quarter: 2016Q2

REPORT INFORMATION
  Report Type: Report from Study
  Country: US (occurrence: US)
  Receive Date: 20160316
  Receipt Date: 20160616
  Transmission Date: 20160815
  Serious: Yes (Hospitalization, Other)
  Sender: FDA-Public Use
  Company Number: US-BAYER-2016-011928

PATIENT
  Age: 49 Year
  Sex: Female

DRUGS (9)
  1. CLINDAMYCIN [Concomitant]
     Active Substance: CLINDAMYCIN\CLINDAMYCIN PHOSPHATE
  2. AMLODIPINE [Concomitant]
     Active Substance: AMLODIPINE BESYLATE
  3. LORATADINE. [Concomitant]
     Active Substance: LORATADINE
  4. PROCHLORPERAZINE. [Concomitant]
     Active Substance: PROCHLORPERAZINE
  5. KEPPRA [Concomitant]
     Active Substance: LEVETIRACETAM
  6. COLECALCIFEROL [Concomitant]
     Active Substance: CHOLECALCIFEROL
  7. STIVARGA [Suspect]
     Active Substance: REGORAFENIB
     Indication: COLON CANCER
     Dosage: 120 MG, QD (3 TABLETS DAILY X 21 DAYS EVERY 28 DAYS)
     Route: 048
     Dates: start: 20160117, end: 20160428
  8. ACETAMINOPHEN\HYDROCODONE BITARTRATE [Concomitant]
     Active Substance: ACETAMINOPHEN\HYDROCODONE BITARTRATE
  9. ONDANSETRON [Concomitant]
     Active Substance: ONDANSETRON

REACTIONS (8)
  - Abdominal pain lower [Recovered/Resolved]
  - Palmar-plantar erythrodysaesthesia syndrome [Not Recovered/Not Resolved]
  - Drug ineffective [None]
  - Skin irritation [Not Recovered/Not Resolved]
  - Dyspepsia [None]
  - Pain of skin [Not Recovered/Not Resolved]
  - Tumour marker increased [None]
  - Hypertension [Recovered/Resolved]

NARRATIVE: CASE EVENT DATE: 20160118
